FAERS Safety Report 10352975 (Version 2)
Quarter: 2014Q3

REPORT INFORMATION
  Report Type: Report from Study
  Country: DE (occurrence: DE)
  Receive Date: 20140730
  Receipt Date: 20140805
  Transmission Date: 20150326
  Serious: Yes (Death)
  Sender: FDA-Public Use
  Company Number: DE-ABBVIE-14P-062-1266456-00

PATIENT
  Age: 82 Year
  Sex: Male

DRUGS (1)
  1. LUPRON DEPOT [Suspect]
     Active Substance: LEUPROLIDE ACETATE
     Indication: PROSTATE CANCER
     Dosage: IRREGULAR
     Dates: start: 20121126, end: 20140519

REACTIONS (1)
  - Death [Fatal]

NARRATIVE: CASE EVENT DATE: 20140725
